FAERS Safety Report 4862663-6 (Version None)
Quarter: 2005Q4

REPORT INFORMATION
  Report Type: 
  Country: None (occurrence: None)
  Receive Date: 20051221
  Receipt Date: 20050928
  Transmission Date: 20060501
  Serious: Yes (Other)
  Sender: FDA-Public Use
  Company Number: US-MERCK-0509USA04615

PATIENT
  Sex: Male

DRUGS (3)
  1. VIOXX [Suspect]
     Route: 048
     Dates: start: 20010504, end: 20020101
  2. BEXTRA [Suspect]
     Route: 065
  3. CELEBREX [Suspect]
     Route: 065

REACTIONS (1)
  - CEREBROVASCULAR ACCIDENT [None]
